FAERS Safety Report 18473644 (Version 2)
Quarter: 2020Q4

REPORT INFORMATION
  Report Type: Spontaneous
  Country: DE (occurrence: DE)
  Receive Date: 20201106
  Receipt Date: 20201210
  Transmission Date: 20210114
  Serious: Yes (Other)
  Sender: FDA-Public Use
  Company Number: DE-AMGEN-DEUSP2020180518

PATIENT
  Age: 70 Year
  Sex: Female

DRUGS (4)
  1. AIMOVIG [Suspect]
     Active Substance: ERENUMAB-AOOE
     Indication: MIGRAINE
     Dosage: 70 MILLIGRAM
     Route: 058
     Dates: start: 2019
  2. AIMOVIG [Suspect]
     Active Substance: ERENUMAB-AOOE
     Dosage: 140 MILLIGRAM
     Route: 058
     Dates: start: 202005, end: 202011
  3. ORTOTON [METHOCARBAMOL] [Concomitant]
     Active Substance: METHOCARBAMOL
     Indication: PAIN
     Dosage: 750 MILLIGRAM, QD
     Route: 048
  4. NOVAMINSULFON [Concomitant]
     Active Substance: METAMIZOLE
     Indication: PAIN
     Dosage: 500-1000 MG/DAY
     Route: 048

REACTIONS (3)
  - Diarrhoea [Unknown]
  - Colitis ulcerative [Recovering/Resolving]
  - Crohn^s disease [Unknown]

NARRATIVE: CASE EVENT DATE: 202005
